FAERS Safety Report 19744764 (Version 1)
Quarter: 2021Q3

REPORT INFORMATION
  Report Type: Report from Study
  Country: CA (occurrence: CA)
  Receive Date: 20210825
  Receipt Date: 20210825
  Transmission Date: 20211014
  Serious: Yes (Other)
  Sender: FDA-Public Use
  Company Number: CA-PFIZER INC-202101068714

PATIENT
  Age: 48 Year
  Sex: Female

DRUGS (6)
  1. OTEZLA [Concomitant]
     Active Substance: APREMILAST
     Dosage: 2 DF, 1X/DAY
     Route: 048
  2. OTEZLA [Concomitant]
     Active Substance: APREMILAST
     Dosage: 30 MG, 2X/DAY
     Route: 048
  3. AUBAGIO [Concomitant]
     Active Substance: TERIFLUNOMIDE
     Route: 065
  4. BACLOFEN. [Concomitant]
     Active Substance: BACLOFEN
     Dosage: UNK, 1X/DAY
     Route: 065
  5. TOPIRAMATE. [Suspect]
     Active Substance: TOPIRAMATE
     Indication: MIGRAINE
     Route: 048
  6. METHOTREXATE SODIUM. [Suspect]
     Active Substance: METHOTREXATE SODIUM
     Dosage: UNK
     Route: 058

REACTIONS (15)
  - Condition aggravated [Unknown]
  - Pain in extremity [Unknown]
  - Drug ineffective [Unknown]
  - Mobility decreased [Unknown]
  - Dysstasia [Unknown]
  - Dactylitis [Unknown]
  - Skin disorder [Unknown]
  - Skin plaque [Unknown]
  - Arthralgia [Unknown]
  - Gait disturbance [Unknown]
  - Ill-defined disorder [Unknown]
  - Psoriatic arthropathy [Unknown]
  - Enthesopathy [Unknown]
  - Joint swelling [Unknown]
  - Synovitis [Unknown]
